FAERS Safety Report 9587551 (Version 1)
Quarter: 2013Q4

REPORT INFORMATION
  Report Type: Spontaneous
  Country: IT (occurrence: IT)
  Receive Date: 20131003
  Receipt Date: 20131003
  Transmission Date: 20140711
  Serious: Yes (Hospitalization)
  Sender: FDA-Public Use
  Company Number: IT-TEVA-434513ISR

PATIENT
  Age: 75 Year
  Sex: Male
  Weight: 56 kg

DRUGS (3)
  1. QUETIAPINA FUMARATO [Suspect]
     Indication: CONFUSIONAL STATE
     Dosage: 25 MILLIGRAM DAILY;
     Route: 048
     Dates: start: 20130501, end: 20130823
  2. MICARDIS 40 MG [Concomitant]
     Indication: HYPERTENSION
  3. CARDIOASPIRIN 100 MG [Concomitant]
     Indication: PROPHYLAXIS
     Dosage: GASTRORESISTANT TABLETS

REACTIONS (4)
  - Anaemia macrocytic [Recovered/Resolved]
  - Blood bilirubin increased [Recovered/Resolved]
  - Blood lactate dehydrogenase increased [Recovered/Resolved]
  - Haemolysis [Recovered/Resolved]
